FAERS Safety Report 5914900-4 (Version None)
Quarter: 2008Q4

REPORT INFORMATION
  Report Type: 
  Country: None (occurrence: None)
  Receive Date: 20081010
  Receipt Date: 20081006
  Transmission Date: 20090506
  Serious: Yes (Death, Hospitalization)
  Sender: FDA-Public Use
  Company Number: PHHY2008FR23819

PATIENT
  Sex: Male

DRUGS (19)
  1. EXELON [Suspect]
     Dosage: 3 MG, BID
     Route: 048
     Dates: start: 20080722
  2. ZYPREXA [Suspect]
     Dosage: 5 MG, QD
     Route: 048
     Dates: start: 20080611
  3. ZYPREXA [Suspect]
     Dosage: 5 MG, BID
     Route: 048
     Dates: start: 20080704
  4. ZYPREXA [Suspect]
     Dosage: 20 MG, QD
     Route: 048
     Dates: start: 20080722
  5. OXAZEPAM [Suspect]
     Dosage: 10 MG, TID
     Route: 048
     Dates: start: 20080703, end: 20080722
  6. EQUANIL [Suspect]
     Dosage: 400 MG, BID
     Route: 048
     Dates: start: 20080722
  7. EQUANIL [Suspect]
     Dosage: UNK
     Route: 048
     Dates: start: 20080722
  8. INIPOMP [Concomitant]
     Dosage: 20 MG
  9. TAHOR [Concomitant]
     Dosage: 10 MG
  10. AMLOD [Concomitant]
     Dosage: 5 MG
  11. KARDEGIC [Concomitant]
     Dosage: 75 MG
  12. ESIDRIX [Concomitant]
     Dosage: 25 MG
  13. TRIATEC [Concomitant]
     Dosage: 5 MG
  14. NOVOLOG MIX 70/30 [Concomitant]
  15. DOLIPRANE [Concomitant]
  16. RIVOTRIL [Concomitant]
     Dosage: UNK
     Dates: start: 20080608, end: 20080611
  17. IMOVANE [Concomitant]
     Dosage: UNK
     Dates: start: 20080611, end: 20080625
  18. TERCIAN [Concomitant]
     Dosage: UNK
     Dates: start: 20080611, end: 20080703
  19. ATARAX [Concomitant]
     Dosage: 25 MG
     Dates: start: 20080529, end: 20080613

REACTIONS (4)
  - CONCUSSION [None]
  - FALL [None]
  - PNEUMONIA ASPIRATION [None]
  - SOMNOLENCE [None]
